FAERS Safety Report 4885253-8 (Version None)
Quarter: 2005Q4

REPORT INFORMATION
  Report Type: 
  Country: None (occurrence: None)
  Receive Date: 20051220
  Receipt Date: 20051014
  Transmission Date: 20060501
  Serious: Yes (Hospitalization)
  Sender: FDA-Public Use
  Company Number: US152703

PATIENT
  Age: 69 Year
  Sex: Female
  Weight: 39.5 kg

DRUGS (13)
  1. ENBREL [Suspect]
     Indication: RHEUMATOID ARTHRITIS
     Dosage: 50 MG, 1 IN 1 WEEKS
     Dates: start: 20050830, end: 20050830
  2. UNSPECIFIED MEDICATION [Suspect]
  3. ENALAPRIL [Concomitant]
  4. ESTROPIATE [Concomitant]
  5. IMIPRAMINE [Concomitant]
  6. CALCIUM CITRATE [Concomitant]
  7. ERGOCALCIFEROL [Concomitant]
  8. FISH OIL [Concomitant]
  9. GLUCOSAMINE [Concomitant]
  10. CYCLOBENZAPRINE HCL [Concomitant]
  11. NAPROXEN [Concomitant]
  12. METHOTREXATE [Concomitant]
  13. MULTIVITAMIN/MULTIMINERAL [Concomitant]

REACTIONS (2)
  - CELLULITIS [None]
  - STAPHYLOCOCCAL ABSCESS [None]
